FAERS Safety Report 21559232 (Version 3)
Quarter: 2023Q1

REPORT INFORMATION
  Report Type: Report from Study
  Country: US (occurrence: US)
  Receive Date: 20221107
  Receipt Date: 20230112
  Transmission Date: 20230418
  Serious: Yes (Hospitalization)
  Sender: FDA-Public Use
  Company Number: US-002147023-NVSC2022US249776

PATIENT
  Sex: Male

DRUGS (1)
  1. ENTRESTO [Suspect]
     Active Substance: SACUBITRIL\VALSARTAN
     Indication: Product used for unknown indication
     Dosage: UNK UNK, BID
     Route: 048

REACTIONS (9)
  - Bronchitis [Unknown]
  - Asthma [Unknown]
  - Cough [Unknown]
  - Rhinorrhoea [Unknown]
  - Decreased activity [Unknown]
  - Weight decreased [Unknown]
  - Fatigue [Unknown]
  - Feeding disorder [Unknown]
  - Inappropriate schedule of product administration [Unknown]
